FAERS Safety Report 4853597-1 (Version None)
Quarter: 2005Q4

REPORT INFORMATION
  Report Type: 
  Country: None (occurrence: None)
  Receive Date: 20051129
  Receipt Date: 20050912
  Transmission Date: 20060501
  Serious: No
  Sender: FDA-Public Use
  Company Number: WAES 0509USA01594

PATIENT
  Age: 63 Year
  Sex: Female

DRUGS (2)
  1. ZETIA [Suspect]
     Dosage: 10 MG DAILY PO
     Route: 048
  2. STATIN (UNSPECIFIED) [Concomitant]

REACTIONS (1)
  - HEPATIC ENZYME INCREASED [None]
